FAERS Safety Report 8319488-9 (Version None)
Quarter: 2012Q2

REPORT INFORMATION
  Report Type: 
  Country: None (occurrence: None)
  Receive Date: 20120426
  Receipt Date: 20120426
  Transmission Date: 20120825
  Serious: No
  Sender: FDA-Public Use
  Company Number: None

PATIENT
  Age: 40 Year
  Sex: Male

DRUGS (10)
  1. LETAIRIS [Suspect]
     Indication: PULMONARY HYPERTENSION
     Dosage: LETAIRIS 10 MG DAILY ORALLY
     Route: 048
     Dates: start: 20090401, end: 20120401
  2. FLUOXETINE [Concomitant]
  3. POTASSIUM CHLORIDE [Concomitant]
  4. FUROSEMIDE [Concomitant]
  5. REVATIO [Concomitant]
  6. HYDROCODONE BITARTRATE AND ACETAMINOPHEN [Concomitant]
  7. OMEPRAZOLE [Concomitant]
  8. DIGOXIN [Concomitant]
  9. SIMVASTATIN [Concomitant]
  10. CARVEDILOL [Concomitant]

REACTIONS (6)
  - AGITATION [None]
  - RENAL FAILURE [None]
  - LACTIC ACIDOSIS [None]
  - LIVER FUNCTION TEST ABNORMAL [None]
  - CARDIO-RESPIRATORY ARREST [None]
  - HYPERKALAEMIA [None]
